FAERS Safety Report 4953038-X (Version None)
Quarter: 2006Q1

REPORT INFORMATION
  Report Type: 
  Country: None (occurrence: None)
  Receive Date: 20060320
  Receipt Date: 20060303
  Transmission Date: 20060701
  Serious: Yes (Other)
  Sender: FDA-Public Use
  Company Number: 2006033350

PATIENT
  Age: 70 Year
  Sex: Male

DRUGS (1)
  1. VIAGRA [Suspect]
     Indication: ILL-DEFINED DISORDER

REACTIONS (4)
  - BLINDNESS [None]
  - NEUROPATHY [None]
  - OPTIC ISCHAEMIC NEUROPATHY [None]
  - RETINAL DISORDER [None]
